FAERS Safety Report 7826964-1 (Version None)
Quarter: 2011Q4

REPORT INFORMATION
  Report Type: 
  Country: None (occurrence: None)
  Receive Date: 20111020
  Receipt Date: 20111014
  Transmission Date: 20120403
  Serious: Yes (Hospitalization)
  Sender: FDA-Public Use
  Company Number: AU-AMGEN-AUSSP2011031441

PATIENT
  Age: 65 Year
  Sex: Female

DRUGS (5)
  1. GOLD [Concomitant]
  2. PROLIA [Suspect]
     Indication: BONE DISORDER
     Dosage: UNK
     Dates: start: 20110101
  3. IMURAN [Concomitant]
  4. CORTISONE ACETATE [Concomitant]
  5. PREDNISOLONE [Concomitant]

REACTIONS (1)
  - LOCALISED INFECTION [None]
